FAERS Safety Report 15281764 (Version 2)
Quarter: 2018Q4

REPORT INFORMATION
  Report Type: Report from Study
  Country: US (occurrence: US)
  Receive Date: 20180815
  Receipt Date: 20181013
  Transmission Date: 20190204
  Serious: Yes (Death, Other)
  Sender: FDA-Public Use
  Company Number: PHEH2018US033745

PATIENT
  Sex: Male

DRUGS (1)
  1. ENTRESTO [Suspect]
     Active Substance: SACUBITRIL\VALSARTAN
     Indication: CARDIAC FAILURE CHRONIC
     Dosage: 50 MG, BID
     Route: 048
     Dates: start: 20180626, end: 20180724

REACTIONS (4)
  - Cardiac failure chronic [Fatal]
  - Hypotension [Unknown]
  - Brain natriuretic peptide increased [Fatal]
  - Drug ineffective [Unknown]
